FAERS Safety Report 6216853-0 (Version None)
Quarter: 2009Q2

REPORT INFORMATION
  Report Type: 
  Country: None (occurrence: None)
  Receive Date: 20090605
  Receipt Date: 20090526
  Transmission Date: 20091009
  Serious: Yes (Life-Threatening, Hospitalization, Disabling)
  Sender: FDA-Public Use
  Company Number: FR-SANOFI-SYNTHELABO-A02200901363

PATIENT
  Sex: Male

DRUGS (5)
  1. LIORESAL [Suspect]
     Indication: CEREBROVASCULAR ACCIDENT
     Route: 048
     Dates: start: 20050101
  2. PERINDOPRIL ERBUMINE [Suspect]
     Indication: HYPERTENSION
     Route: 048
     Dates: start: 19990101
  3. TAHOR [Suspect]
     Indication: CEREBROVASCULAR ACCIDENT
     Dosage: UNK
     Route: 048
     Dates: start: 20050101, end: 20080929
  4. RAPTIVA [Suspect]
     Indication: PSORIASIS
     Dosage: 1 MG/KG 1/WEEK
     Route: 058
     Dates: start: 20070827, end: 20080929
  5. PLAVIX [Suspect]
     Indication: CEREBROVASCULAR ACCIDENT
     Route: 048
     Dates: start: 20050101, end: 20080929

REACTIONS (2)
  - NEOPLASM PROGRESSION [None]
  - RECTAL CANCER METASTATIC [None]
